FAERS Safety Report 8262374-3 (Version None)
Quarter: 2012Q1

REPORT INFORMATION
  Report Type: 
  Country: None (occurrence: None)
  Receive Date: 20120327
  Receipt Date: 20090429
  Transmission Date: 20120608
  Serious: Yes (Other)
  Sender: FDA-Public Use
  Company Number: PHHY2009US09617

PATIENT
  Age: 81 Year
  Sex: Male
  Weight: 73.2 kg

DRUGS (2)
  1. GLEEVEC [Suspect]
     Indication: GASTRIC CANCER
     Dosage: 400 MG, QD, ORAL
     Route: 048
     Dates: start: 20081008
  2. INFED [Suspect]
     Dosage: IV INFUSION
     Route: 042

REACTIONS (4)
  - RECTAL DISCHARGE [None]
  - DIARRHOEA [None]
  - SKIN IRRITATION [None]
  - PYREXIA [None]
